FAERS Safety Report 21376668 (Version 1)
Quarter: 2022Q3

REPORT INFORMATION
  Report Type: Spontaneous
  Country: US (occurrence: None)
  Receive Date: 20220924
  Receipt Date: 20220924
  Transmission Date: 20221027
  Serious: Yes (Other)
  Sender: FDA-Public Use
  Company Number: None

PATIENT
  Age: 37 Year
  Sex: Male

DRUGS (1)
  1. ROBITUSSIN DM MAX COUGH CONGESTION [Suspect]
     Active Substance: DEXTROMETHORPHAN HYDROBROMIDE\GUAIFENESIN
     Indication: COVID-19
     Dates: start: 20220704, end: 20220704

REACTIONS (2)
  - Product packaging issue [None]
  - Product label confusion [None]

NARRATIVE: CASE EVENT DATE: 20220704
